FAERS Safety Report 5648069-0 (Version None)
Quarter: 2008Q1

REPORT INFORMATION
  Report Type: 
  Country: None (occurrence: None)
  Receive Date: 20080229
  Receipt Date: 20080109
  Transmission Date: 20080703
  Serious: Yes (Other)
  Sender: FDA-Public Use
  Company Number: 2007AL004248

PATIENT
  Age: 58 Year
  Sex: Female

DRUGS (10)
  1. DEXAMETHASONE ELIXIR [Suspect]
     Indication: POSTOPERATIVE CARE
     Dates: start: 20070614, end: 20070614
  2. GLYCEROL 2.6% [Concomitant]
     Indication: EYE OPERATION
  3. POVIDONE IODINE [Concomitant]
  4. LIDOCAINE [Concomitant]
  5. OCUFEN [Concomitant]
  6. OFLOXACIN [Concomitant]
  7. CYCLOPENTOLATE HCL [Concomitant]
  8. PHENYLEPHRINE [Concomitant]
  9. PROXYMETACAINE [Concomitant]
  10. HYALURONATE SODIUM [Concomitant]

REACTIONS (1)
  - TOXIC ANTERIOR SEGMENT SYNDROME [None]
